FAERS Safety Report 23749939 (Version 1)
Quarter: 2024Q2

REPORT INFORMATION
  Report Type: Spontaneous
  Country: FR (occurrence: FR)
  Receive Date: 20240417
  Receipt Date: 20240417
  Transmission Date: 20240716
  Serious: Yes (Other)
  Sender: FDA-Public Use
  Company Number: None

PATIENT
  Age: 82 Year
  Sex: Female
  Weight: 85 kg

DRUGS (17)
  1. CAPECITABINE [Suspect]
     Active Substance: CAPECITABINE
     Indication: Breast cancer metastatic
     Dosage: 1500 MG MORNING ; 1300 MG EVENING
     Route: 048
     Dates: start: 20240109, end: 20240123
  2. PREDNISONE [Concomitant]
     Active Substance: PREDNISONE
     Dosage: MORNING?DAILY DOSE: 2 MILLIGRAM
  3. ELIQUIS [Concomitant]
     Active Substance: APIXABAN
     Dosage: 5 MG MORNING AND EVENING?DAILY DOSE: 10 MILLIGRAM
  4. DAPAGLIFLOZIN [Concomitant]
     Active Substance: DAPAGLIFLOZIN
     Dosage: DAILY DOSE: 10 MILLIGRAM
  5. NEBIVOLOL [Concomitant]
     Active Substance: NEBIVOLOL
     Dosage: DAILY DOSE: 2.5 MILLIGRAM
  6. FUROSEMIDE [Concomitant]
     Active Substance: FUROSEMIDE
     Dosage: DAILY DOSE: 20 MILLIGRAM
  7. BELIMUMAB [Concomitant]
     Active Substance: BELIMUMAB
     Dosage: DAILY DOSE: 200 MILLIGRAM
  8. FEBUXOSTAT [Concomitant]
     Active Substance: FEBUXOSTAT
     Dosage: 30 MG 1 DAY OUT OF 2?DAILY DOSE: 30 MILLIGRAM
  9. BACTRIM [Concomitant]
     Active Substance: SULFAMETHOXAZOLE\TRIMETHOPRIM
     Dosage: 3X/WEEK
  10. FOLIC ACID [Concomitant]
     Active Substance: FOLIC ACID
     Dosage: MORNING?DAILY DOSE: 5 MILLIGRAM
  11. CALCIUM\VITAMIN D [Concomitant]
     Active Substance: CALCIUM\VITAMIN D
  12. VITAMIN D [Concomitant]
     Active Substance: VITAMIN D NOS
     Dosage: 1 AMP/2 MONTHS
  13. ACETAMINOPHEN [Concomitant]
     Active Substance: ACETAMINOPHEN
  14. PILOCARPINE [Concomitant]
     Active Substance: PILOCARPINE
     Dosage: 5 MG 4X/DAY?DAILY DOSE: 20 MILLIGRAM
  15. HYALURONATE SODIUM\TREHALOSE [Concomitant]
     Active Substance: HYALURONATE SODIUM\TREHALOSE
     Dosage: 1 GT 3/D?DAILY DOSE: 3 DROP
  16. CARBOXYMETHYLCELLULOSE SODIUM\GLYCERIN [Concomitant]
     Active Substance: CARBOXYMETHYLCELLULOSE SODIUM\GLYCERIN
     Dosage: 1 GT 3/D?DAILY DOSE: 3 DROP
  17. CYCLOSPORINE [Concomitant]
     Active Substance: CYCLOSPORINE
     Dosage: 0.1% 1 GT 2/D?DAILY DOSE: 2 DROP

REACTIONS (3)
  - Ischaemia [Recovering/Resolving]
  - Cutaneous lupus erythematosus [Not Recovered/Not Resolved]
  - Ulcer [Recovering/Resolving]

NARRATIVE: CASE EVENT DATE: 20240123
